FAERS Safety Report 8267018-2 (Version None)
Quarter: 2012Q2

REPORT INFORMATION
  Report Type: 
  Country: None (occurrence: None)
  Receive Date: 20120409
  Receipt Date: 20120404
  Transmission Date: 20120825
  Serious: No
  Sender: FDA-Public Use
  Company Number: US-PFIZER INC-2012085511

PATIENT
  Age: 55 Year
  Sex: Female
  Weight: 95.238 kg

DRUGS (5)
  1. XALKORI [Suspect]
     Indication: ANAPLASTIC LYMPHOMA RECEPTOR TYROSINE KINASE ASSAY
  2. LEVOXYL [Concomitant]
     Indication: HYPOTHYROIDISM
     Dosage: 100 UG, DAILY
  3. CITALOPRAM [Concomitant]
     Indication: DEPRESSION
     Dosage: 20 MG, DAILY
  4. XALKORI [Suspect]
     Indication: LUNG NEOPLASM MALIGNANT
     Dosage: 250 MG, 2X/DAY
     Dates: start: 20120211, end: 20120301
  5. XALKORI [Suspect]
     Indication: MALIGNANT PLEURAL EFFUSION

REACTIONS (1)
  - LIVER FUNCTION TEST ABNORMAL [None]
